FAERS Safety Report 13777155 (Version 1)
Quarter: 2017Q3

REPORT INFORMATION
  Report Type: Spontaneous
  Country: US (occurrence: US)
  Receive Date: 20170721
  Receipt Date: 20170721
  Transmission Date: 20171127
  Serious: No
  Sender: FDA-Public Use
  Company Number: None

PATIENT
  Age: 58 Year
  Sex: Female

DRUGS (1)
  1. HARVONI [Suspect]
     Active Substance: LEDIPASVIR\SOFOSBUVIR
     Dosage: 1 TAB QD ORAL
     Route: 048
     Dates: start: 20170628

REACTIONS (3)
  - Headache [None]
  - Fatigue [None]
  - Chromaturia [None]

NARRATIVE: CASE EVENT DATE: 20170710
